FAERS Safety Report 13489700 (Version 1)
Quarter: 2017Q2

REPORT INFORMATION
  Report Type: Spontaneous
  Country: US (occurrence: US)
  Receive Date: 20170427
  Receipt Date: 20170427
  Transmission Date: 20170830
  Serious: No
  Sender: FDA-Public Use
  Company Number: None

PATIENT
  Age: 69 Year
  Sex: Male
  Weight: 56 kg

DRUGS (1)
  1. CETUXIMAB. [Suspect]
     Active Substance: CETUXIMAB
     Indication: CHEMOTHERAPY
     Route: 042
     Dates: start: 20170223, end: 20170223

REACTIONS (4)
  - Hypotension [None]
  - Pruritus [None]
  - Infusion related reaction [None]
  - Dizziness [None]

NARRATIVE: CASE EVENT DATE: 20170223
